FAERS Safety Report 25269775 (Version 1)
Quarter: 2025Q2

REPORT INFORMATION
  Report Type: Spontaneous
  Country: US (occurrence: US)
  Receive Date: 20250505
  Receipt Date: 20250505
  Transmission Date: 20250717
  Serious: No
  Sender: DR REDDYS
  Company Number: US-DRL-USA-USA/2025/04/006048

PATIENT
  Sex: Female

DRUGS (2)
  1. SUMATRIPTAN [Suspect]
     Active Substance: SUMATRIPTAN
     Indication: Product used for unknown indication
     Route: 065
  2. RIZATRIPTAN [Suspect]
     Active Substance: RIZATRIPTAN
     Indication: Product used for unknown indication
     Route: 065

REACTIONS (1)
  - Contraindicated product administered [Unknown]
